FAERS Safety Report 7657477-8 (Version None)
Quarter: 2011Q3

REPORT INFORMATION
  Report Type: 
  Country: None (occurrence: None)
  Receive Date: 20110804
  Receipt Date: 20110726
  Transmission Date: 20111222
  Serious: Yes (Hospitalization)
  Sender: FDA-Public Use
  Company Number: BR-ASTRAZENECA-2011SE44889

PATIENT
  Age: 46 Year
  Sex: Male
  Weight: 62 kg

DRUGS (2)
  1. OMEPRAZOLE [Concomitant]
     Route: 048
  2. ENTOCORT EC [Suspect]
     Indication: PROCTOCOLITIS
     Route: 048
     Dates: start: 20060101, end: 20110701

REACTIONS (4)
  - DRUG INEFFECTIVE FOR UNAPPROVED INDICATION [None]
  - OFF LABEL USE [None]
  - DIARRHOEA [None]
  - COLITIS [None]
